FAERS Safety Report 10210552 (Version 1)
Quarter: 2014Q2

REPORT INFORMATION
  Report Type: Report from Study
  Country: CA (occurrence: CA)
  Receive Date: 20140602
  Receipt Date: 20140602
  Transmission Date: 20141212
  Serious: Yes (Other)
  Sender: FDA-Public Use
  Company Number: CA-MPIJNJ-2014JNJ003648

PATIENT
  Sex: 0

DRUGS (6)
  1. VELCADE [Suspect]
     Indication: AMYLOIDOSIS
     Dosage: 1.3 MG/M2, 1/WEEK
     Route: 058
  2. DEXAMETHASONE [Concomitant]
     Indication: AMYLOIDOSIS
     Dosage: 20 MG, 1/WEEK
     Route: 048
  3. WARFARIN [Concomitant]
  4. ALDACTONE                          /00006201/ [Concomitant]
     Dosage: 25 MG, UNK
     Route: 048
  5. ELTROXIN [Concomitant]
     Dosage: 0.05 MG, UNK
     Route: 048
  6. HYDROCHLOROTHIAZIDE [Concomitant]
     Dosage: 25 MG, UNK
     Route: 048

REACTIONS (5)
  - Gastrointestinal disorder [Not Recovered/Not Resolved]
  - Disease progression [Not Recovered/Not Resolved]
  - Epigastric discomfort [Not Recovered/Not Resolved]
  - Helicobacter infection [Unknown]
  - Dysphagia [Not Recovered/Not Resolved]
